FAERS Safety Report 12647251 (Version 1)
Quarter: 2016Q3

REPORT INFORMATION
  Report Type: Spontaneous
  Country: US (occurrence: None)
  Receive Date: 20160811
  Receipt Date: 20160811
  Transmission Date: 20161109
  Serious: Yes (Disabling)
  Sender: FDA-Public Use
  Company Number: None

PATIENT
  Age: 59 Year
  Sex: Female
  Weight: 70.31 kg

DRUGS (8)
  1. IBUPROPHEN [Concomitant]
     Active Substance: IBUPROFEN
  2. OTEZLA [Suspect]
     Active Substance: APREMILAST
     Indication: ARTHRITIS
     Route: 048
     Dates: start: 20151001, end: 20160702
  3. COCONUT OIL//GREEN TEA AND VITAMINS [Concomitant]
  4. B12 PROBIOTICS [Concomitant]
  5. TIMOVATE OINTMENT [Concomitant]
  6. OTEZLA [Suspect]
     Active Substance: APREMILAST
     Indication: PSORIASIS
     Route: 048
     Dates: start: 20151001, end: 20160702
  7. ASPIRIN. [Concomitant]
     Active Substance: ASPIRIN
  8. DOVENEX OINTMENT/HYDROCORTISONE [Concomitant]

REACTIONS (7)
  - Hypoaesthesia [None]
  - Tendon disorder [None]
  - Diabetes mellitus [None]
  - Candida infection [None]
  - Dry mouth [None]
  - Pain in extremity [None]
  - Arthropathy [None]
